FAERS Safety Report 6195183-X (Version None)
Quarter: 2009Q2

REPORT INFORMATION
  Report Type: 
  Country: None (occurrence: None)
  Receive Date: 20090519
  Receipt Date: 20090508
  Transmission Date: 20091009
  Serious: Yes (Disabling)
  Sender: FDA-Public Use
  Company Number: US-MERCK-0812USA04686

PATIENT
  Sex: Female

DRUGS (4)
  1. FOSAMAX [Suspect]
     Indication: OSTEOPOROSIS
     Route: 048
     Dates: start: 20060401, end: 20080101
  2. FOSAMAX PLUS D [Suspect]
     Indication: OSTEOPOROSIS
     Route: 065
  3. INDERAL [Concomitant]
     Route: 065
     Dates: start: 19910901
  4. IMITREX [Concomitant]
     Route: 065
     Dates: start: 19960901

REACTIONS (4)
  - HEAD INJURY [None]
  - JAW DISORDER [None]
  - OSTEONECROSIS [None]
  - UPPER LIMB FRACTURE [None]
